FAERS Safety Report 4723719-1 (Version None)
Quarter: 2005Q3

REPORT INFORMATION
  Report Type: 
  Country: None (occurrence: None)
  Receive Date: 20050725
  Receipt Date: 20050711
  Transmission Date: 20060218
  Serious: Yes (Other)
  Sender: FDA-Public Use
  Company Number: JP-JNJFOC-20041203582

PATIENT
  Age: 26 Year
  Sex: Female
  Weight: 45.2 kg

DRUGS (6)
  1. CLADRIBINE [Suspect]
     Dosage: CYCLE 6
     Route: 050
  2. CLADRIBINE [Suspect]
     Dosage: CYCLE 5
     Route: 050
  3. CLADRIBINE [Suspect]
     Dosage: CYCLE 4
     Route: 050
  4. CLADRIBINE [Suspect]
     Dosage: CYCLE 3
     Route: 050
  5. CLADRIBINE [Suspect]
     Dosage: CYCLE 2
     Route: 050
  6. CLADRIBINE [Suspect]
     Indication: B-CELL LYMPHOMA
     Dosage: CYCLE ONE
     Route: 050

REACTIONS (4)
  - CYSTITIS HAEMORRHAGIC [None]
  - HYDRONEPHROSIS [None]
  - PANCYTOPENIA [None]
  - PYELONEPHRITIS [None]
